FAERS Safety Report 8992777 (Version 1)
Quarter: 2013Q1

REPORT INFORMATION
  Report Type: Spontaneous
  Country: IN (occurrence: IN)
  Receive Date: 20130102
  Receipt Date: 20130102
  Transmission Date: 20140127
  Serious: Yes (Other)
  Sender: FDA-Public Use
  Company Number: IN-ROCHE-1175853

PATIENT
  Age: 67 Year
  Sex: Male

DRUGS (2)
  1. TENECTEPLASE [Suspect]
     Indication: MYOCARDIAL INFARCTION
     Route: 042
     Dates: start: 20100220, end: 20100220
  2. ENOXAPARIN [Concomitant]
     Route: 065

REACTIONS (2)
  - Reocclusion [Recovered/Resolved with Sequelae]
  - Cardiogenic shock [Recovered/Resolved with Sequelae]
